FAERS Safety Report 9429391 (Version 1)
Quarter: 2013Q3

REPORT INFORMATION
  Report Type: Report from Study
  Country: US (occurrence: US)
  Receive Date: 20130730
  Receipt Date: 20130730
  Transmission Date: 20140515
  Serious: No
  Sender: FDA-Public Use
  Company Number: US-ABBOTT-13P-163-1053563-00

PATIENT
  Sex: Male
  Weight: 54.48 kg

DRUGS (8)
  1. NIASPAN (COATED) [Suspect]
     Indication: LOW DENSITY LIPOPROTEIN INCREASED
     Dosage: AT BEDTIME
  2. NIASPAN (COATED) [Suspect]
     Indication: DRUG INTOLERANCE
  3. OXYCODONE [Concomitant]
     Indication: PAIN
     Dosage: 5/325 MG AS NEEDED
  4. TEMAZEPAM [Concomitant]
     Indication: INSOMNIA
  5. CALCIUM [Concomitant]
     Indication: OSTEOPOROSIS
  6. RECLAST [Concomitant]
     Indication: OSTEOPOROSIS
  7. IRON [Concomitant]
     Indication: IRON DEFICIENCY ANAEMIA
  8. VITAMIN C [Concomitant]
     Indication: IRON DEFICIENCY ANAEMIA

REACTIONS (2)
  - Flushing [Not Recovered/Not Resolved]
  - Middle insomnia [Not Recovered/Not Resolved]
